FAERS Safety Report 7672398-2 (Version None)
Quarter: 2011Q3

REPORT INFORMATION
  Report Type: 
  Country: None (occurrence: None)
  Receive Date: 20110809
  Receipt Date: 20110802
  Transmission Date: 20111222
  Serious: Yes (Disabling, Other)
  Sender: FDA-Public Use
  Company Number: PT-MERCK-1107PRT00014

PATIENT
  Age: 13 Year
  Sex: Female

DRUGS (6)
  1. DOMPERIDONE [Concomitant]
     Route: 065
  2. ACETAMINOPHEN [Concomitant]
     Route: 065
  3. BUDESONIDE [Concomitant]
     Route: 065
  4. RANITIDINE [Concomitant]
     Route: 065
  5. GABAPENTIN [Concomitant]
     Route: 065
  6. SINGULAIR [Suspect]
     Indication: ASTHMA
     Route: 065
     Dates: start: 20100601, end: 20110418

REACTIONS (2)
  - GUILLAIN-BARRE SYNDROME [None]
  - DEPRESSION [None]
